FAERS Safety Report 6529935-0 (Version None)
Quarter: 2010Q1

REPORT INFORMATION
  Report Type: 
  Country: None (occurrence: None)
  Receive Date: 20100107
  Receipt Date: 20100105
  Transmission Date: 20100710
  Serious: Yes (Other)
  Sender: FDA-Public Use
  Company Number: Z0002600A

PATIENT
  Sex: Female

DRUGS (7)
  1. ZANAMIVIR [Suspect]
     Indication: INFLUENZA
     Dosage: 600MG TWICE PER DAY
     Route: 042
     Dates: start: 20091207, end: 20091211
  2. CEFTRIAXONE [Concomitant]
     Indication: PNEUMONIA
     Dosage: 1G PER DAY
     Route: 042
     Dates: start: 20091205
  3. MIDAZOLAM HCL [Concomitant]
     Indication: SEDATION
     Route: 042
     Dates: start: 20091206
  4. FENTANYL-100 [Concomitant]
     Indication: SEDATION
     Route: 042
     Dates: start: 20091206
  5. CISATRACURIUM BESYLATE [Concomitant]
     Indication: PARALYSIS
     Route: 042
     Dates: start: 20081206
  6. ENOXAPARIN SODIUM [Concomitant]
     Indication: THROMBOSIS PROPHYLAXIS
     Dosage: 4000IU PER DAY
     Route: 058
  7. MACROGOL [Concomitant]
     Indication: CONSTIPATION
     Dosage: 2 PER DAY
     Dates: start: 20091209

REACTIONS (1)
  - CYTOLYTIC HEPATITIS [None]
